FAERS Safety Report 4985007-8 (Version None)
Quarter: 2006Q2

REPORT INFORMATION
  Report Type: 
  Country: None (occurrence: None)
  Receive Date: 20060426
  Receipt Date: 20060426
  Transmission Date: 20061013
  Serious: Yes (Life-Threatening)
  Sender: FDA-Public Use
  Company Number: None

PATIENT
  Age: 77 Year
  Sex: Male

DRUGS (2)
  1. FUROSEMIDE [Suspect]
  2. METOPROLOL SUCCINATE [Suspect]

REACTIONS (1)
  - HYPOTENSION [None]
